FAERS Safety Report 6165083-X (Version None)
Quarter: 2009Q2

REPORT INFORMATION
  Report Type: 
  Country: None (occurrence: None)
  Receive Date: 20090421
  Receipt Date: 20090421
  Transmission Date: 20091009
  Serious: Yes (Other)
  Sender: FDA-Public Use
  Company Number: None

PATIENT
  Age: 45 Year
  Sex: Male
  Weight: 71.6683 kg

DRUGS (1)
  1. LIPITOR [Suspect]
     Indication: CORONARY ARTERY OCCLUSION
     Dosage: 80 MG DAILY PO
     Route: 048
     Dates: start: 20070425, end: 20090420

REACTIONS (2)
  - EXERCISE TOLERANCE DECREASED [None]
  - MYALGIA [None]
